FAERS Safety Report 8436251-9 (Version None)
Quarter: 2012Q2

REPORT INFORMATION
  Report Type: 
  Country: None (occurrence: None)
  Receive Date: 20120614
  Receipt Date: 20120605
  Transmission Date: 20120825
  Serious: Yes (Other)
  Sender: FDA-Public Use
  Company Number: CA-JNJFOC-20120603015

PATIENT
  Sex: Male
  Weight: 85 kg

DRUGS (10)
  1. FERROUS SULFATE TAB [Concomitant]
     Route: 065
  2. PROBIOTIC [Concomitant]
     Route: 065
  3. LOVAZA [Concomitant]
     Route: 065
  4. PANTOPRAZOLE [Concomitant]
     Route: 065
  5. MESALAZIN [Concomitant]
     Route: 065
  6. IMURAN [Concomitant]
     Route: 065
  7. POTASSIUM ACETATE [Concomitant]
     Route: 065
  8. REMICADE [Suspect]
     Route: 042
     Dates: start: 20120605
  9. CALCIUM AND VITAMIN D [Concomitant]
     Route: 065
  10. REMICADE [Suspect]
     Indication: PSORIATIC ARTHROPATHY
     Route: 042

REACTIONS (1)
  - INGUINAL HERNIA [None]
